FAERS Safety Report 6642124-4 (Version None)
Quarter: 2010Q1

REPORT INFORMATION
  Report Type: 
  Country: None (occurrence: None)
  Receive Date: 20100319
  Receipt Date: 20100311
  Transmission Date: 20100710
  Serious: Yes (Other)
  Sender: FDA-Public Use
  Company Number: DE-BRISTOL-MYERS SQUIBB COMPANY-15013428

PATIENT
  Sex: Male

DRUGS (2)
  1. ZERIT [Suspect]
     Indication: ANTIRETROVIRAL THERAPY
  2. ZIAGEN [Suspect]
     Indication: ANTIRETROVIRAL THERAPY

REACTIONS (1)
  - OSTEONECROSIS [None]
